FAERS Safety Report 15647168 (Version 2)
Quarter: 2019Q1

REPORT INFORMATION
  Report Type: Spontaneous
  Country: US (occurrence: US)
  Receive Date: 20181122
  Receipt Date: 20190115
  Transmission Date: 20190417
  Serious: Yes (Hospitalization, Other)
  Sender: FDA-Public Use
  Company Number: US-AMGEN-USASP2018164207

PATIENT
  Age: 62 Year
  Sex: Male
  Weight: 72.56 kg

DRUGS (45)
  1. PRILOSEC [Concomitant]
     Active Substance: OMEPRAZOLE MAGNESIUM
     Dosage: 40 MG, QD
     Route: 048
  2. KEFLEX [Concomitant]
     Active Substance: CEPHALEXIN
     Dosage: 500 MG, UNK
     Route: 048
     Dates: start: 20180927, end: 20190108
  3. DOXYCYCLINE MONOHYDRATE [Concomitant]
     Active Substance: DOXYCYCLINE
     Dosage: 100 MG, QD (12 TIMES)
     Route: 048
     Dates: start: 20180927, end: 20181010
  4. AZITHROMYCIN ANHYDROUS. [Concomitant]
     Active Substance: AZITHROMYCIN ANHYDROUS
     Dosage: 500 MG, QD
     Route: 048
     Dates: start: 20130919, end: 20170224
  5. AMLODIPINE [Concomitant]
     Active Substance: AMLODIPINE BESYLATE
     Dosage: 5 MG, QD
     Route: 048
     Dates: start: 20170901, end: 20180525
  6. VITAMIN C [Concomitant]
     Active Substance: ASCORBIC ACID
     Dosage: 1000 MG, QD
     Dates: start: 20140723
  7. METHYLPREDNISOLONE. [Concomitant]
     Active Substance: METHYLPREDNISOLONE
     Dosage: 4 MG, AS NECESSARY
     Route: 048
  8. VYTORIN [Concomitant]
     Active Substance: EZETIMIBE\SIMVASTATIN
     Dosage: 10-20 10 MG-20 MG, QD
     Route: 048
     Dates: start: 20100420, end: 20150921
  9. VITAMIN B COMPLEX [Concomitant]
     Active Substance: CYANOCOBALAMIN\DEXPANTHENOL\NIACINAMIDE\PYRIDOXINE HYDROCHLORIDE\RIBOFLAVIN 5^-PHOSPHATE SODIUM\THIAMINE HYDROCHLORIDE\VITAMIN B COMPLEX
     Dosage: UNK
     Dates: start: 20120314
  10. PERCOCET [Concomitant]
     Active Substance: ACETAMINOPHEN\OXYCODONE HYDROCHLORIDE
     Dosage: 5 MG-325 MG
     Route: 048
     Dates: start: 20120706, end: 20180604
  11. MUPIROCIN. [Concomitant]
     Active Substance: MUPIROCIN
     Dosage: 2 %, BID
     Dates: start: 20170908, end: 20180828
  12. LISINOPRIL. [Concomitant]
     Active Substance: LISINOPRIL
     Dosage: 20 MG, QD
     Dates: start: 20170307, end: 20170524
  13. CAPSAICIN. [Concomitant]
     Active Substance: CAPSAICIN
     Dosage: 0.1 %, UNK
     Dates: end: 20180828
  14. BUDESON [Concomitant]
     Dosage: UNK UNK, QD (2 SPRAY ON EACH NOSTRIL)
     Dates: end: 20180828
  15. BLEPH-10 [Concomitant]
     Active Substance: SULFACETAMIDE SODIUM
     Dosage: 10 %, UNK
     Route: 047
     Dates: start: 20170506, end: 20170524
  16. VITAMIN D3 [Concomitant]
     Active Substance: CHOLECALCIFEROL
     Dosage: UNK, QD
     Route: 048
  17. GABAPENTIN. [Concomitant]
     Active Substance: GABAPENTIN
     Dosage: 600 MG, UNK
     Dates: start: 20140516
  18. CALCIUM CITRATE + D [Concomitant]
     Dosage: 315 MG-200 UNIT
  19. CLINDAMYCIN. [Concomitant]
     Active Substance: CLINDAMYCIN
     Dosage: 150 MG, Q6H
     Route: 048
     Dates: start: 20110803, end: 20170831
  20. PROLIA [Suspect]
     Active Substance: DENOSUMAB
     Indication: OSTEOPOROSIS
     Dosage: 60 MG
     Route: 058
     Dates: start: 201411, end: 20181110
  21. ZITHROMAX [Concomitant]
     Active Substance: AZITHROMYCIN DIHYDRATE
     Dosage: 250 MG, UNK
     Route: 048
     Dates: start: 20170307, end: 20180314
  22. HYDROCHLOROTHIAZIDE. [Concomitant]
     Active Substance: HYDROCHLOROTHIAZIDE
     Dosage: 25 MG, QOD
     Route: 048
     Dates: start: 20110803, end: 20170912
  23. BACLOFEN. [Concomitant]
     Active Substance: BACLOFEN
     Dosage: 10 MG, BID
     Route: 048
     Dates: start: 20121003, end: 20121102
  24. CEPHALEXIN. [Concomitant]
     Active Substance: CEPHALEXIN
     Dosage: 500 MG, UNK (EVERY 1 HOUR PRIOR TO DENTAL PROCEDURE)
     Route: 048
     Dates: start: 20140130
  25. CELEBREX [Concomitant]
     Active Substance: CELECOXIB
     Dosage: 200 MG, UNK
     Dates: start: 20100420
  26. TURMERIC [Concomitant]
     Active Substance: HERBALS\TURMERIC
     Dosage: UNK
     Dates: end: 20180926
  27. SENNA [Concomitant]
     Active Substance: SENNA LEAF\SENNOSIDES\SENNOSIDES A AND B
     Indication: CONSTIPATION
     Dosage: 8.6 MG, QD
     Route: 048
     Dates: end: 20150311
  28. PREDNISONE. [Concomitant]
     Active Substance: PREDNISONE
     Dosage: 5 MG, UNK
     Dates: start: 20110803
  29. ATORVASTATIN [Concomitant]
     Active Substance: ATORVASTATIN
     Dosage: 40 MG, UNK
     Dates: start: 20150921
  30. BACTRIM DS [Concomitant]
     Active Substance: SULFAMETHOXAZOLE\TRIMETHOPRIM
     Dosage: UNK UNK, Q12H (800 MG-160 MG)
     Route: 048
     Dates: start: 20180525, end: 20180604
  31. LIDODERM [Concomitant]
     Active Substance: LIDOCAINE
     Dosage: 5 %, UNK
  32. CYCLOBENZAPRINE. [Concomitant]
     Active Substance: CYCLOBENZAPRINE
     Dosage: 5 MG, QHS
     Route: 048
     Dates: start: 20160712
  33. CELEXA [Concomitant]
     Active Substance: CITALOPRAM HYDROBROMIDE
     Dosage: 20 MG, QD
     Route: 048
     Dates: start: 20161017
  34. ASPIRIN. [Concomitant]
     Active Substance: ASPIRIN
     Dosage: 81 MG, QD
     Route: 048
  35. ARAVA [Concomitant]
     Active Substance: LEFLUNOMIDE
     Dosage: 20 MG, QD
     Route: 048
     Dates: start: 20100420
  36. ZANTAC [Concomitant]
     Active Substance: RANITIDINE HYDROCHLORIDE
     Dosage: 150 MG, UNK
     Route: 048
     Dates: start: 20120702, end: 20150311
  37. SIVEXTRO [Concomitant]
     Active Substance: TEDIZOLID PHOSPHATE
     Dosage: 200 MG, QD
     Route: 048
     Dates: start: 20180703, end: 20180708
  38. PROAIR HFA [Concomitant]
     Active Substance: ALBUTEROL SULFATE
     Dosage: UNK UNK, AS NECESSARY
     Dates: start: 20170307, end: 20180412
  39. METRONIDAZOLE. [Concomitant]
     Active Substance: METRONIDAZOLE
     Dosage: 500 MG, Q8H
     Route: 048
     Dates: end: 20180828
  40. DOXYCYCLINE HYCLATE. [Concomitant]
     Active Substance: DOXYCYCLINE HYCLATE
     Dosage: 100 MG, BID
     Route: 048
     Dates: start: 20141010, end: 20180828
  41. XARELTO [Concomitant]
     Active Substance: RIVAROXABAN
     Dosage: 20 MG, UNK
  42. PROBIOTIC [Concomitant]
     Active Substance: PROBIOTICS NOS
     Dosage: 10 BILLION CELL CAPSULE
  43. LOSARTAN. [Concomitant]
     Active Substance: LOSARTAN
     Dosage: 25 MG, QD
     Route: 048
  44. LASIX [Concomitant]
     Active Substance: FUROSEMIDE
     Dosage: 20 MG, QD
     Route: 048
  45. MUCINEX [Concomitant]
     Active Substance: GUAIFENESIN
     Dosage: 600 MG, BID
     Route: 048
     Dates: end: 20180525

REACTIONS (52)
  - Clostridium difficile colitis [Unknown]
  - Concussion [Unknown]
  - Femur fracture [Unknown]
  - Lumbar spinal stenosis [Unknown]
  - Fall [Unknown]
  - Intervertebral disc disorder [Unknown]
  - Bursitis infective [Unknown]
  - Loss of consciousness [Unknown]
  - Meniscus injury [Unknown]
  - Neck injury [Unknown]
  - Paraesthesia [Unknown]
  - Peripheral swelling [Unknown]
  - Rotator cuff syndrome [Unknown]
  - Enterococcal infection [Unknown]
  - Cough [Unknown]
  - Bursitis [Unknown]
  - Dyspnoea [Unknown]
  - Hand deformity [Unknown]
  - Neck pain [Unknown]
  - Piriformis syndrome [Unknown]
  - Tendon rupture [Unknown]
  - Conjunctivitis bacterial [Unknown]
  - Staphylococcal infection [Unknown]
  - Hypoaesthesia [Unknown]
  - Pain [Unknown]
  - Skin lesion [Unknown]
  - Throat clearing [Unknown]
  - Arthralgia [Unknown]
  - Back pain [Unknown]
  - Neuropathy peripheral [Unknown]
  - Staphylococcal sepsis [Unknown]
  - Cerumen impaction [Unknown]
  - Synovial cyst [Unknown]
  - Spinal compression fracture [Unknown]
  - Intervertebral disc protrusion [Unknown]
  - Joint effusion [Unknown]
  - Nasal turbinate hypertrophy [Unknown]
  - Post laminectomy syndrome [Unknown]
  - Wound dehiscence [Unknown]
  - Hand fracture [Unknown]
  - Nephrolithiasis [Unknown]
  - Cellulitis [Unknown]
  - Post-traumatic headache [Unknown]
  - Secondary hypertension [Unknown]
  - Thoracic spinal stenosis [Unknown]
  - Bronchospasm [Unknown]
  - Essential hypertension [Unknown]
  - Pelvic pain [Unknown]
  - Upper-airway cough syndrome [Unknown]
  - Vitamin D deficiency [Unknown]
  - Sciatica [Unknown]
  - Musculoskeletal pain [Unknown]

NARRATIVE: CASE EVENT DATE: 20150216
